FAERS Safety Report 12125460 (Version 2)
Quarter: 2016Q2

REPORT INFORMATION
  Report Type: Spontaneous
  Country: FR (occurrence: FR)
  Receive Date: 20160229
  Receipt Date: 20160510
  Transmission Date: 20160815
  Serious: Yes (Hospitalization)
  Sender: FDA-Public Use
  Company Number: FR-ROCHE-1717188

PATIENT
  Age: 45 Year
  Sex: Female

DRUGS (7)
  1. HYDREA [Concomitant]
     Active Substance: HYDROXYUREA
     Route: 048
     Dates: start: 2003
  2. XAGRID [Suspect]
     Active Substance: ANAGRELIDE HYDROCHLORIDE
     Indication: THROMBOCYTOSIS
     Route: 048
     Dates: start: 201507
  3. KARDEGIC [Concomitant]
     Active Substance: ASPIRIN LYSINE
     Route: 048
     Dates: start: 2003
  4. PEGASYS [Suspect]
     Active Substance: PEGINTERFERON ALFA-2A
     Indication: MYELOPROLIFERATIVE NEOPLASM
     Route: 065
     Dates: start: 201404
  5. XAGRID [Suspect]
     Active Substance: ANAGRELIDE HYDROCHLORIDE
     Dosage: 2 TABLETS PER DAY, LATER DOSE WAS INCREASED TO 5 TABLETS PER DAY
     Route: 048
     Dates: start: 20150915
  6. PEGASYS [Suspect]
     Active Substance: PEGINTERFERON ALFA-2A
     Route: 058
     Dates: start: 20150915, end: 201510
  7. PEGASYS [Suspect]
     Active Substance: PEGINTERFERON ALFA-2A
     Indication: PRODUCT USED FOR UNKNOWN INDICATION
     Dosage: DOSE INCREASED
     Route: 065
     Dates: end: 201507

REACTIONS (1)
  - Posterior reversible encephalopathy syndrome [Recovering/Resolving]

NARRATIVE: CASE EVENT DATE: 20151022
